FAERS Safety Report 16663617 (Version 4)
Quarter: 2020Q3

REPORT INFORMATION
  Report Type: Report from Study
  Country: US (occurrence: US)
  Receive Date: 20190802
  Receipt Date: 20200723
  Transmission Date: 20201102
  Serious: Yes (Hospitalization)
  Sender: FDA-Public Use
  Company Number: US-PFIZER INC-2019326833

PATIENT
  Age: 2 Year
  Sex: Female
  Weight: 12.6 kg

DRUGS (12)
  1. VENETOCLAX. [Suspect]
     Active Substance: VENETOCLAX
     Dosage: TABLET FOR ORAL SUSPENSION, 120MG, 1 IN 1 D, NASOGASTRIC
     Route: 045
     Dates: start: 20190521, end: 20190521
  2. VINCRISTINE SULFATE. [Suspect]
     Active Substance: VINCRISTINE SULFATE
     Indication: NEOPLASM MALIGNANT
     Dosage: 2 MG/M2, 1X/DAY
     Route: 042
     Dates: start: 20190523, end: 20190530
  3. VENETOCLAX. [Suspect]
     Active Substance: VENETOCLAX
     Indication: NEOPLASM MALIGNANT
     Dosage: TABLET FOR ORAL SUSPENSION, 50MG, 1 IN 1 D, NASOGASTRIC
     Route: 045
     Dates: start: 20190520, end: 20190520
  4. DEXAMETHASONE. [Concomitant]
     Active Substance: DEXAMETHASONE
     Indication: NEOPLASM MALIGNANT
     Dosage: 10 MG/M2, 1 IN 1 D
     Route: 048
     Dates: start: 20190523
  5. DEXAMETHASONE. [Concomitant]
     Active Substance: DEXAMETHASONE
     Dosage: 10 MG/M2, 1 IN 1 D
     Route: 048
     Dates: start: 20190606, end: 20190612
  6. PEG/L?ASPARAGINASE [Suspect]
     Active Substance: PEGASPARGASE
     Indication: NEOPLASM MALIGNANT
     Dosage: 2500 IU/M2
     Route: 048
     Dates: start: 20190524, end: 20190524
  7. PEG/L?ASPARAGINASE [Suspect]
     Active Substance: PEGASPARGASE
     Dosage: 2500 IU/M2
     Route: 048
     Dates: start: 20190606, end: 20190606
  8. DEXAMETHASONE. [Concomitant]
     Active Substance: DEXAMETHASONE
     Dosage: 10 MG/M2, 1 IN 1 D
     Route: 048
     Dates: start: 20190620, end: 20190626
  9. VENETOCLAX. [Suspect]
     Active Substance: VENETOCLAX
     Dosage: TABLET FOR ORAL SUSPENSION, 15MG, 1 IN 1 D, NASOGASTRIC
     Route: 045
     Dates: start: 20190707, end: 20190707
  10. LEVOFLOXACIN. [Concomitant]
     Active Substance: LEVOFLOXACIN
     Indication: PROPHYLAXIS
     Dosage: 130 MG, 2X/DAY
     Route: 048
     Dates: start: 20190621
  11. VENETOCLAX. [Suspect]
     Active Substance: VENETOCLAX
     Dosage: TABLET FOR ORAL SUSPENSION, 30MG, 1 IN 1 D, NASOGASTRIC
     Route: 045
     Dates: start: 20190708
  12. VENETOCLAX. [Suspect]
     Active Substance: VENETOCLAX
     Dosage: TABLET FOR ORAL SUSPENSION, 250MG, 1 IN 1 D, NASOGASTRIC
     Route: 045
     Dates: start: 20190522, end: 20190701

REACTIONS (2)
  - Febrile neutropenia [Recovered/Resolved]
  - Pulmonary mycosis [Recovered/Resolved]

NARRATIVE: CASE EVENT DATE: 20190702
